FAERS Safety Report 12325344 (Version 1)
Quarter: 2016Q2

REPORT INFORMATION
  Report Type: Spontaneous
  Country: US (occurrence: US)
  Receive Date: 20160502
  Receipt Date: 20160502
  Transmission Date: 20160815
  Serious: No
  Sender: FDA-Public Use
  Company Number: US-ASTRAZENECA-2016SE32017

PATIENT
  Age: 21432 Day
  Sex: Male

DRUGS (5)
  1. MOVANTIK [Suspect]
     Active Substance: NALOXEGOL OXALATE
     Indication: CONSTIPATION
     Route: 048
     Dates: start: 20160316
  2. FIBER [Concomitant]
     Active Substance: PSYLLIUM HUSK
     Dosage: UNKNOWN DOSE, UNKNOWN FREQUENCY
     Route: 065
  3. STOOL SOFTNER [Concomitant]
     Active Substance: DOCUSATE SODIUM
     Dosage: UNKNOWN DOSE, UNKNOWN FREQUENCY
     Route: 065
  4. MOVANTIK [Suspect]
     Active Substance: NALOXEGOL OXALATE
     Indication: CONSTIPATION
     Route: 048
     Dates: start: 20160321
  5. METHADONE [Concomitant]
     Active Substance: METHADONE HYDROCHLORIDE
     Indication: PAIN
     Dosage: UNKNOWN DOSE, UNKNOWN FREQUENCY
     Route: 065

REACTIONS (4)
  - Malaise [Unknown]
  - Constipation [Unknown]
  - Diarrhoea [Unknown]
  - Muscle spasms [Unknown]

NARRATIVE: CASE EVENT DATE: 20160316
